FAERS Safety Report 13562334 (Version 3)
Quarter: 2017Q2

REPORT INFORMATION
  Report Type: Report from Study
  Country: JP (occurrence: JP)
  Receive Date: 20170519
  Receipt Date: 20170630
  Transmission Date: 20170830
  Serious: Yes (Life-Threatening, Hospitalization, Other)
  Sender: FDA-Public Use
  Company Number: JP-TAKEDA-2017TJP010404

PATIENT
  Age: 73 Year
  Sex: Male
  Weight: 63 kg

DRUGS (11)
  1. GLIMICRON [Concomitant]
     Active Substance: GLICLAZIDE
     Indication: TYPE 2 DIABETES MELLITUS
     Dosage: 40 MG, UNK
     Route: 048
     Dates: end: 20120417
  2. MICAMLO [Concomitant]
     Active Substance: AMLODIPINE BESYLATE\TELMISARTAN
     Dosage: UNK
     Route: 048
  3. BAYASPIRIN [Concomitant]
     Active Substance: ASPIRIN
     Dosage: UNK
     Route: 048
     Dates: end: 20150115
  4. MICARDIS [Concomitant]
     Active Substance: TELMISARTAN
     Dosage: UNK
     Route: 048
  5. ALOGLIPTIN. [Suspect]
     Active Substance: ALOGLIPTIN
     Indication: TYPE 2 DIABETES MELLITUS
     Dosage: 25 MG, QD
     Route: 048
     Dates: start: 20120418
  6. AMLODIN [Concomitant]
     Active Substance: AMLODIPINE BESYLATE
     Dosage: UNK
     Route: 048
  7. THEO-DUR [Concomitant]
     Active Substance: THEOPHYLLINE ANHYDROUS
     Dosage: UNK
     Route: 048
  8. HOKUNALIN                          /00654901/ [Concomitant]
     Active Substance: TULOBUTEROL
     Dosage: UNK
     Route: 062
  9. MUCOSTA [Concomitant]
     Active Substance: REBAMIPIDE
     Dosage: UNK
     Route: 048
  10. FLUTIFORM [Concomitant]
     Active Substance: FLUTICASONE PROPIONATE\FORMOTEROL FUMARATE
     Dosage: UNK
     Route: 050
  11. GLIMICRON [Concomitant]
     Active Substance: GLICLAZIDE
     Dosage: 20 MG, UNK
     Route: 048
     Dates: start: 20120418

REACTIONS (7)
  - Fall [Recovered/Resolved]
  - Subdural haematoma [Recovered/Resolved]
  - Pyrexia [Recovered/Resolved]
  - Contusion [Recovered/Resolved]
  - Excoriation [Recovered/Resolved]
  - Subdural hygroma [Recovered/Resolved]
  - Headache [Recovered/Resolved]

NARRATIVE: CASE EVENT DATE: 20150107
